FAERS Safety Report 4303541-0 (Version None)
Quarter: 2004Q1

REPORT INFORMATION
  Report Type: 
  Country: None (occurrence: None)
  Receive Date: 20040218
  Receipt Date: 20030317
  Transmission Date: 20041129
  Serious: Yes (Hospitalization, Other)
  Sender: FDA-Public Use
  Company Number: KII-2003-0007029

PATIENT
  Age: 48 Year
  Sex: Male

DRUGS (3)
  1. MORPHINE SULFATE [Suspect]
  2. BENZODIAZEPINE DERIVATIVES () [Suspect]
  3. TRICYCLIC ANTIDEPRESSANTS () [Suspect]

REACTIONS (13)
  - AGITATION [None]
  - ASPARTATE AMINOTRANSFERASE INCREASED [None]
  - BLOOD CREATINE PHOSPHOKINASE INCREASED [None]
  - DEPRESSED LEVEL OF CONSCIOUSNESS [None]
  - HYPERKALAEMIA [None]
  - HYPERTENSION [None]
  - INTENTIONAL OVERDOSE [None]
  - PNEUMONIA [None]
  - RENAL FAILURE [None]
  - SEPSIS [None]
  - SUICIDE ATTEMPT [None]
  - TACHYCARDIA [None]
  - URINARY TRACT INFECTION [None]
